FAERS Safety Report 23409711 (Version 4)
Quarter: 2024Q1

REPORT INFORMATION
  Report Type: Spontaneous
  Country: US (occurrence: US)
  Receive Date: 20240117
  Receipt Date: 20240312
  Transmission Date: 20240410
  Serious: No
  Sender: FDA-Public Use
  Company Number: US-PFIZER INC-202400008908

PATIENT
  Age: 74 Year
  Sex: Female
  Weight: 94.785 kg

DRUGS (3)
  1. PREMARIN [Suspect]
     Active Substance: ESTROGENS, CONJUGATED
     Dosage: UNK
     Route: 067
     Dates: start: 2022
  2. GABAPENTIN [Concomitant]
     Active Substance: GABAPENTIN
     Dosage: UNK
  3. ADVIL [Concomitant]
     Active Substance: IBUPROFEN
     Indication: Blood pressure abnormal
     Dosage: UNK

REACTIONS (2)
  - Vulvovaginal burning sensation [Recovered/Resolved]
  - Vulvovaginal pain [Unknown]
